FAERS Safety Report 6252653-3 (Version None)
Quarter: 2009Q2

REPORT INFORMATION
  Report Type: 
  Country: None (occurrence: None)
  Receive Date: 20090629
  Receipt Date: 20090629
  Transmission Date: 20091009
  Serious: Yes (Hospitalization)
  Sender: FDA-Public Use
  Company Number: None

PATIENT
  Sex: Female
  Weight: 67 kg

DRUGS (3)
  1. CISPLATIN [Suspect]
     Dosage: 49 MG
  2. ERBITUX [Suspect]
     Dosage: 820 MG
  3. CAMPTOSAR [Suspect]
     Dosage: 107 MG

REACTIONS (2)
  - HAEMOGLOBIN DECREASED [None]
  - PULMONARY EMBOLISM [None]
